FAERS Safety Report 5569812-5 (Version None)
Quarter: 2007Q4

REPORT INFORMATION
  Report Type: 
  Country: None (occurrence: None)
  Receive Date: 20071218
  Receipt Date: 20071203
  Transmission Date: 20080405
  Serious: Yes (Hospitalization)
  Sender: FDA-Public Use
  Company Number: 2007S1012695

PATIENT
  Age: 84 Year
  Sex: Female
  Weight: 92 kg

DRUGS (2)
  1. NAPROXEN [Suspect]
     Indication: PAIN IN EXTREMITY
     Dosage: 500 MG; TWICE A DAY
     Dates: start: 20070524
  2. WARFARIN SODIUM [Suspect]

REACTIONS (8)
  - ARTHRALGIA [None]
  - GASTRITIS EROSIVE [None]
  - HAEMATEMESIS [None]
  - HAEMORRHAGIC CYST [None]
  - INTERNATIONAL NORMALISED RATIO INCREASED [None]
  - OESOPHAGITIS [None]
  - RENAL IMPAIRMENT [None]
  - SYNOVIAL CYST [None]
